FAERS Safety Report 9460119 (Version 4)
Quarter: 2013Q3

REPORT INFORMATION
  Report Type: Spontaneous
  Country: US (occurrence: US)
  Receive Date: 20130815
  Receipt Date: 20130924
  Transmission Date: 20140515
  Serious: Yes (Hospitalization, Other)
  Sender: FDA-Public Use
  Company Number: US-PFIZER INC-2013237133

PATIENT
  Age: 50 Year
  Sex: Male
  Weight: 77.1 kg

DRUGS (7)
  1. XANAX [Suspect]
     Indication: ANXIETY
     Dosage: UNK
     Dates: start: 2012, end: 2012
  2. VIAGRA [Suspect]
     Indication: ERECTILE DYSFUNCTION
     Dosage: UNK, AS NEEDED
     Dates: start: 2012
  3. LITHIUM CARBONATE [Suspect]
     Indication: BIPOLAR I DISORDER
     Dosage: 300 MG, DAILY
  4. LITHIUM CARBONATE [Suspect]
     Dosage: 600 MG, DAILY
  5. LITHIUM CARBONATE [Suspect]
     Dosage: 900 MG, DAILY
  6. VALIUM [Suspect]
     Indication: ANXIETY
     Dosage: 10 MG, 3X/DAY
     Dates: start: 2012
  7. NEXIUM [Concomitant]
     Indication: DYSPEPSIA
     Dosage: UNK

REACTIONS (7)
  - Suicide attempt [Unknown]
  - Road traffic accident [Unknown]
  - Intervertebral disc protrusion [Unknown]
  - Drug intolerance [Unknown]
  - Activities of daily living impaired [Unknown]
  - Back pain [Unknown]
  - Erectile dysfunction [Unknown]
